FAERS Safety Report 4800631-0 (Version None)
Quarter: 2005Q3

REPORT INFORMATION
  Report Type: 
  Country: None (occurrence: None)
  Receive Date: 20050929
  Receipt Date: 20050907
  Transmission Date: 20060218
  Serious: Yes (Other)
  Sender: FDA-Public Use
  Company Number: 2005BH001919

PATIENT
  Sex: 0

DRUGS (2)
  1. VINORELBINE TARTRATE [Suspect]
     Indication: NEOPLASM MALIGNANT
     Dosage: 20 MG/M**2; IV
     Route: 042
  2. ZD0473 (NO PREF. NAME) [Suspect]
     Indication: NEOPLASM MALIGNANT
     Dosage: 150 MG/M**2; IV
     Route: 042

REACTIONS (2)
  - CARDIAC FAILURE [None]
  - OEDEMA PERIPHERAL [None]
